FAERS Safety Report 7097262-1 (Version None)
Quarter: 2010Q4

REPORT INFORMATION
  Report Type: 
  Country: None (occurrence: None)
  Receive Date: 20101111
  Receipt Date: 20100412
  Transmission Date: 20110411
  Serious: No
  Sender: FDA-Public Use
  Company Number: US-KINGPHARMUSA00001-K201000437

PATIENT
  Sex: Female
  Weight: 64.853 kg

DRUGS (5)
  1. LEVOXYL [Suspect]
     Indication: AUTOIMMUNE THYROIDITIS
     Dosage: 100 MG, QD
     Route: 048
  2. LEVOXYL [Suspect]
     Indication: HYPOTHYROIDISM
     Dosage: 112 MG, QD
     Route: 048
     Dates: start: 20100310, end: 20100317
  3. LEVOXYL [Suspect]
     Dosage: 100 MG, QD
     Route: 048
     Dates: start: 20100318
  4. PROGESTERONE [Concomitant]
     Dosage: UNK
     Route: 061
  5. MELATONIN [Concomitant]
     Dosage: UNK

REACTIONS (3)
  - NASOPHARYNGITIS [None]
  - PRURITUS [None]
  - RASH MACULO-PAPULAR [None]
